FAERS Safety Report 6775317-6 (Version None)
Quarter: 2010Q2

REPORT INFORMATION
  Report Type: 
  Country: None (occurrence: None)
  Receive Date: 20100615
  Receipt Date: 20100615
  Transmission Date: 20101027
  Serious: No
  Sender: FDA-Public Use
  Company Number: None

PATIENT
  Age: 67 Year
  Sex: Female
  Weight: 57.1532 kg

DRUGS (2)
  1. ADVAIR DISKUS 250/50 [Suspect]
     Indication: BRONCHIAL HYPERREACTIVITY
     Dates: start: 20091221, end: 20091228
  2. ADVAIR DISKUS 250/50 [Suspect]
     Indication: BRONCHITIS
     Dates: start: 20091221, end: 20091228

REACTIONS (2)
  - AGEUSIA [None]
  - ANOSMIA [None]
